FAERS Safety Report 16611683 (Version 1)
Quarter: 2019Q3

REPORT INFORMATION
  Report Type: Spontaneous
  Country: US (occurrence: US)
  Receive Date: 20190722
  Receipt Date: 20190722
  Transmission Date: 20191004
  Serious: Yes (Other)
  Sender: FDA-Public Use
  Company Number: US-MYLANLABS-2019M1067572

PATIENT
  Age: 48 Year
  Sex: Female

DRUGS (5)
  1. LEVOTHYROXINE. [Concomitant]
     Active Substance: LEVOTHYROXINE
     Indication: BASEDOW^S DISEASE
     Dosage: 175 MICROGRAM, QD
     Route: 065
  2. TRIAMCINOLONE [Suspect]
     Active Substance: TRIAMCINOLONE
     Indication: THYROID DERMATOPATHY
     Dosage: RECEIVED 10-40MG/CC FOR ONE YEAR
     Route: 026
  3. PENTOXIFYLLINE. [Suspect]
     Active Substance: PENTOXIFYLLINE
     Indication: THYROID DERMATOPATHY
     Dosage: THREE TIMES A DAY
     Route: 048
  4. HYALURONIDASE [Suspect]
     Active Substance: HYALURONIDASE
     Indication: THYROID DERMATOPATHY
     Dosage: RECEIVED 200U/ML FOR 1 YEAR
     Route: 026
  5. CLOBETASOL [Suspect]
     Active Substance: CLOBETASOL
     Indication: THYROID DERMATOPATHY
     Route: 065

REACTIONS (1)
  - Drug ineffective [Unknown]
